FAERS Safety Report 8071157-9 (Version None)
Quarter: 2012Q1

REPORT INFORMATION
  Report Type: 
  Country: None (occurrence: None)
  Receive Date: 20120125
  Receipt Date: 20120115
  Transmission Date: 20120608
  Serious: Yes (Other)
  Sender: FDA-Public Use
  Company Number: PHEH2011US011123

PATIENT
  Sex: Male

DRUGS (1)
  1. AFINITOR [Suspect]
     Indication: MALIGNANT URINARY TRACT NEOPLASM

REACTIONS (6)
  - ABNORMAL BEHAVIOUR [None]
  - PERSONALITY CHANGE [None]
  - ASTHENIA [None]
  - HYPERSOMNIA [None]
  - FATIGUE [None]
  - DRUG INEFFECTIVE [None]
